FAERS Safety Report 8454708-1 (Version None)
Quarter: 2012Q2

REPORT INFORMATION
  Report Type: 
  Country: None (occurrence: None)
  Receive Date: 20120621
  Receipt Date: 20120612
  Transmission Date: 20120825
  Serious: Yes (Other)
  Sender: FDA-Public Use
  Company Number: US-SHIRE-ALL1-2012-02954

PATIENT
  Age: 30 Year
  Sex: Male

DRUGS (1)
  1. LIALDA [Suspect]
     Indication: COLITIS ULCERATIVE
     Dosage: 3.6 G, 1X/DAY:QD (3-1.2 G TABLETS)
     Route: 048
     Dates: start: 20120601, end: 20120611

REACTIONS (1)
  - SWOLLEN TONGUE [None]
